FAERS Safety Report 8402675-9 (Version None)
Quarter: 2012Q2

REPORT INFORMATION
  Report Type: 
  Country: None (occurrence: None)
  Receive Date: 20120601
  Receipt Date: 20120525
  Transmission Date: 20120825
  Serious: Yes (Life-Threatening, Hospitalization, Other)
  Sender: FDA-Public Use
  Company Number: SE-ROCHE-1063333

PATIENT
  Sex: Male
  Weight: 100 kg

DRUGS (5)
  1. PREDNISONE TAB [Concomitant]
     Route: 048
  2. METFORMIN HCL [Concomitant]
  3. ACTEMRA [Suspect]
     Route: 042
     Dates: start: 20120404
  4. ACTEMRA [Suspect]
     Indication: RHEUMATOID ARTHRITIS
     Dosage: STRENGTH: 20 MG/ML
     Route: 042
     Dates: start: 20120227, end: 20120404
  5. SIMVASTATIN [Concomitant]

REACTIONS (2)
  - ANAPHYLACTIC REACTION [None]
  - HYPOTONIA [None]
